FAERS Safety Report 19084196 (Version 1)
Quarter: 2021Q2

REPORT INFORMATION
  Report Type: Spontaneous
  Country: FR (occurrence: FR)
  Receive Date: 20210401
  Receipt Date: 20210401
  Transmission Date: 20210717
  Serious: Yes (Hospitalization, Other)
  Sender: FDA-Public Use
  Company Number: FR-SA-2020SA006867

PATIENT
  Sex: Female
  Weight: 92 kg

DRUGS (3)
  1. DEPAKINE [Suspect]
     Active Substance: VALPROATE SODIUM
     Dosage: 1000 MG (THE PATIENT?S HUSBAND WAS UNDER DEPAKINE AND NOT BY THE PATIENT HERSELF)
     Route: 050
     Dates: start: 20180828
  2. AUBAGIO [Suspect]
     Active Substance: TERIFLUNOMIDE
  3. FOLIC ACID. [Concomitant]
     Active Substance: FOLIC ACID
     Dosage: UNK
     Route: 065

REACTIONS (3)
  - Ectopic pregnancy [Unknown]
  - Exposure via partner [Unknown]
  - Abortion spontaneous [Unknown]

NARRATIVE: CASE EVENT DATE: 201902
